FAERS Safety Report 8413383-2 (Version None)
Quarter: 2012Q2

REPORT INFORMATION
  Report Type: 
  Country: None (occurrence: None)
  Receive Date: 20120605
  Receipt Date: 20120531
  Transmission Date: 20120825
  Serious: Yes (Other)
  Sender: FDA-Public Use
  Company Number: PHHY2012IT046438

PATIENT
  Sex: Female

DRUGS (3)
  1. RAMIPRIL [Suspect]
  2. FUROSEMIDE [Suspect]
  3. POTASSIUM CANRENOATE [Suspect]

REACTIONS (1)
  - SYNCOPE [None]
